FAERS Safety Report 5767002-4 (Version None)
Quarter: 2008Q2

REPORT INFORMATION
  Report Type: 
  Country: None (occurrence: None)
  Receive Date: 20080609
  Receipt Date: 20080527
  Transmission Date: 20081010
  Serious: Yes (Hospitalization)
  Sender: FDA-Public Use
  Company Number: 001118

PATIENT
  Age: 9 Year
  Sex: Female

DRUGS (7)
  1. BUSULFEX [Suspect]
     Indication: STEM CELL TRANSPLANT
     Dosage: 26 ML; INTRAVENOUS
     Route: 042
     Dates: start: 20071009, end: 20071010
  2. BUSULFEX [Suspect]
     Indication: STEM CELL TRANSPLANT
     Dosage: 26 ML; INTRAVENOUS
     Route: 042
     Dates: start: 20071012
  3. BUSULFEX [Suspect]
     Indication: STEM CELL TRANSPLANT
     Dosage: 26 ML; INTRAVENOUS
     Route: 042
     Dates: start: 20071011
  4. MELPHALAN (MELPHALAN) [Suspect]
     Dates: start: 20071014, end: 20071015
  5. CLONAZEPAM [Concomitant]
  6. METHOTREXATE [Concomitant]
  7. TACROLIMUS [Concomitant]

REACTIONS (12)
  - ACUTE GRAFT VERSUS HOST DISEASE [None]
  - ALANINE AMINOTRANSFERASE INCREASED [None]
  - ANOREXIA [None]
  - ASPARTATE AMINOTRANSFERASE INCREASED [None]
  - DIARRHOEA [None]
  - FEBRILE NEUTROPENIA [None]
  - GAMMA-GLUTAMYLTRANSFERASE INCREASED [None]
  - HYPERBILIRUBINAEMIA [None]
  - HYPOKALAEMIA [None]
  - HYPOPROTEINAEMIA [None]
  - MALAISE [None]
  - STOMATITIS [None]
